FAERS Safety Report 8766532 (Version 4)
Quarter: 2012Q4

REPORT INFORMATION
  Report Type: 
  Country: GB (occurrence: GB)
  Receive Date: 20120904
  Receipt Date: 20121011
  Transmission Date: 20130627
  Serious: Yes (Other)
  Sender: FDA-Public Use
  Company Number: GB-WATSON-2012-15261

PATIENT
  Age: 61 Year
  Sex: Female
  Weight: 78.46 kg

DRUGS (6)
  1. ATORVASTATIN (UNKNOWN) [Suspect]
     Indication: PRODUCT USED FOR UNKNOWN INDICATION
     Dosage: Unknown
     Route: 048
     Dates: start: 20120710, end: 20120731
  2. AMLODIPINE (UNKNOWN) [Suspect]
     Indication: PRODUCT USED FOR UNKNOWN INDICATION
     Dosage: Unknown
     Route: 065
  3. SIMVASTATIN (UNKNOWN) [Suspect]
     Indication: PRODUCT USED FOR UNKNOWN INDICATION
     Dosage: Unknown
     Route: 048
     Dates: start: 20120310
  4. PERINDOPRIL (UNKNOWN) [Suspect]
     Indication: PRODUCT USED FOR UNKNOWN INDICATION
     Dosage: Unknown
     Route: 065
  5. DIPYRIDAMOLE (WATSON LABORATORIES) [Suspect]
     Indication: PRODUCT USED FOR UNKNOWN INDICATION
     Dosage: Unknown
     Route: 065
  6. ASPIRIN [Suspect]
     Indication: PRODUCT USED FOR UNKNOWN INDICATION
     Dosage: 75 mg, unknown
     Route: 065

REACTIONS (4)
  - Abdominal pain [Unknown]
  - Renal disorder [Recovered/Resolved]
  - Myalgia [Unknown]
  - Quality of life decreased [Unknown]
